FAERS Safety Report 8589157-9 (Version None)
Quarter: 2012Q3

REPORT INFORMATION
  Report Type: 
  Country: None (occurrence: None)
  Receive Date: 20120813
  Receipt Date: 20120807
  Transmission Date: 20120928
  Serious: Yes (Hospitalization)
  Sender: FDA-Public Use
  Company Number: US-PFIZER INC-2012123917

PATIENT
  Age: 24 Year
  Sex: Male
  Weight: 82.54 kg

DRUGS (2)
  1. XYNTHA [Suspect]
     Indication: FACTOR VIII DEFICIENCY
     Dosage: BETWEEN 1990 I.U. TO 2050 I.U, 3X/WEEK
     Dates: start: 20110101
  2. DEPAKOTE [Concomitant]
     Indication: EPILEPSY
     Dosage: 1000 MG, DAILY

REACTIONS (1)
  - PNEUMONIA [None]
